FAERS Safety Report 11636094 (Version 1)
Quarter: 2015Q4

REPORT INFORMATION
  Report Type: Spontaneous
  Country: US (occurrence: US)
  Receive Date: 20151016
  Receipt Date: 20151016
  Transmission Date: 20160304
  Serious: No
  Sender: FDA-Public Use
  Company Number: US-H14001-14-00392

PATIENT
  Age: 53 Year
  Sex: Female
  Weight: 51.76 kg

DRUGS (5)
  1. BUPIVACAINE [Concomitant]
     Active Substance: BUPIVACAINE
     Indication: PAIN
     Route: 065
     Dates: start: 20100403
  2. INFUMORPH [Suspect]
     Active Substance: MORPHINE SULFATE
     Indication: BACK PAIN
     Route: 065
  3. INFUMORPH [Suspect]
     Active Substance: MORPHINE SULFATE
     Indication: PAIN
     Route: 065
     Dates: start: 20111005
  4. DILAUDID [Concomitant]
     Active Substance: HYDROMORPHONE HYDROCHLORIDE
     Indication: NAUSEA
     Route: 065
     Dates: start: 20111018, end: 20120227
  5. FENTANYL. [Concomitant]
     Active Substance: FENTANYL
     Indication: PRODUCT USED FOR UNKNOWN INDICATION
     Route: 065
     Dates: start: 20100227

REACTIONS (5)
  - Pain [Recovering/Resolving]
  - Migraine [Recovered/Resolved]
  - Nausea [Recovered/Resolved]
  - Underdose [Recovered/Resolved]
  - Pruritus [Unknown]

NARRATIVE: CASE EVENT DATE: 20111005
